FAERS Safety Report 25246116 (Version 1)
Quarter: 2025Q2

REPORT INFORMATION
  Report Type: Report from Study
  Country: US (occurrence: US)
  Receive Date: 20250428
  Receipt Date: 20250428
  Transmission Date: 20250716
  Serious: Yes (Other)
  Sender: PFIZER
  Company Number: US-PFIZER INC-PV202500046726

PATIENT
  Age: 37 Year
  Sex: Female
  Weight: 97.959 kg

DRUGS (2)
  1. NURTEC ODT [Suspect]
     Active Substance: RIMEGEPANT SULFATE
     Indication: Migraine
     Route: 048
     Dates: start: 2023, end: 202408
  2. TYLENOL [Suspect]
     Active Substance: ACETAMINOPHEN
     Indication: Migraine
     Route: 048
     Dates: start: 202408

REACTIONS (2)
  - Maternal exposure during pregnancy [Recovered/Resolved]
  - Arrested labour [Recovered/Resolved]

NARRATIVE: CASE EVENT DATE: 20240718
